FAERS Safety Report 8830452 (Version 2)
Quarter: 2012Q4

REPORT INFORMATION
  Report Type: Report from Study
  Country: US (occurrence: US)
  Receive Date: 20121009
  Receipt Date: 20121030
  Transmission Date: 20130627
  Serious: Yes (Hospitalization, Other)
  Sender: FDA-Public Use
  Company Number: US-ACTELION-A-US2012-72459

PATIENT
  Age: 60 Year
  Sex: Female

DRUGS (4)
  1. VENTAVIS [Suspect]
     Indication: PULMONARY ARTERIAL HYPERTENSION
     Dosage: UNK
     Route: 055
     Dates: start: 20120813
  2. COUMADIN [Concomitant]
  3. METOLAZONE [Concomitant]
  4. BUMETANIDE [Concomitant]

REACTIONS (2)
  - Anaemia [Recovering/Resolving]
  - Transfusion [Recovering/Resolving]
